FAERS Safety Report 7536214-1 (Version None)
Quarter: 2011Q2

REPORT INFORMATION
  Report Type: 
  Country: None (occurrence: None)
  Receive Date: 20110609
  Receipt Date: 20110601
  Transmission Date: 20111010
  Serious: Yes (Disabling, Other)
  Sender: FDA-Public Use
  Company Number: FR-NOVOPROD-324544

PATIENT
  Age: 43 Year
  Sex: Male
  Weight: 119 kg

DRUGS (3)
  1. BYETTA [Suspect]
     Indication: PRODUCT USED FOR UNKNOWN INDICATION
     Dosage: (10X2)
     Route: 030
     Dates: start: 20050101, end: 20100901
  2. METFORMIN HCL [Concomitant]
     Dosage: 2 G, QD
     Dates: start: 20050101, end: 20101210
  3. VICTOZA [Suspect]
     Indication: PRODUCT USED FOR UNKNOWN INDICATION
     Dosage: UNK
     Route: 065
     Dates: start: 20100901, end: 20101210

REACTIONS (3)
  - PANCREATITIS [None]
  - WEIGHT DECREASED [None]
  - RENAL FAILURE ACUTE [None]
